FAERS Safety Report 6431872-7 (Version None)
Quarter: 2009Q4

REPORT INFORMATION
  Report Type: 
  Country: None (occurrence: None)
  Receive Date: 20091109
  Receipt Date: 20091030
  Transmission Date: 20100525
  Serious: Yes (Other)
  Sender: FDA-Public Use
  Company Number: DE-RANBAXY-2009RR-28948

PATIENT
  Age: 51 Year
  Sex: Male
  Weight: 106 kg

DRUGS (3)
  1. PRAVASTATIN [Suspect]
     Indication: LOW DENSITY LIPOPROTEIN INCREASED
     Dosage: 40 MG, UNK
     Route: 048
     Dates: start: 20090128
  2. CONCOR [Concomitant]
     Dosage: 2.5 MG, QD
     Route: 048
  3. MARCUMAR [Concomitant]

REACTIONS (1)
  - MUSCLE RUPTURE [None]
